FAERS Safety Report 6075342-7 (Version None)
Quarter: 2009Q1

REPORT INFORMATION
  Report Type: 
  Country: None (occurrence: None)
  Receive Date: 20090212
  Receipt Date: 20090210
  Transmission Date: 20090719
  Serious: Yes (Hospitalization)
  Sender: FDA-Public Use
  Company Number: BR-WYE-H07922509

PATIENT
  Sex: Female
  Weight: 57 kg

DRUGS (3)
  1. EFFEXOR XR [Suspect]
     Indication: DEPRESSION
     Route: 048
     Dates: start: 20090101, end: 20090101
  2. EFFEXOR XR [Suspect]
     Route: 048
     Dates: start: 20090101, end: 20090101
  3. POTASSIUM CITRATE [Concomitant]
     Indication: NEPHROLITHIASIS

REACTIONS (3)
  - DYSPNOEA [None]
  - FACIAL PALSY [None]
  - MUSCULOSKELETAL STIFFNESS [None]
